FAERS Safety Report 14745594 (Version 2)
Quarter: 2018Q4

REPORT INFORMATION
  Report Type: Report from Study
  Country: US (occurrence: US)
  Receive Date: 20180411
  Receipt Date: 20181029
  Transmission Date: 20190204
  Serious: Yes (Other)
  Sender: FDA-Public Use
  Company Number: US-ROCHE-2104797

PATIENT
  Age: 68 Year
  Sex: Female
  Weight: 114.41 kg

DRUGS (2)
  1. OCREVUS [Suspect]
     Active Substance: OCRELIZUMAB
     Indication: RELAPSING-REMITTING MULTIPLE SCLEROSIS
     Dosage: FULL DOSE ON 03/APR/2018.
     Route: 042
     Dates: start: 20170922, end: 20181003
  2. OCREVUS [Suspect]
     Active Substance: OCRELIZUMAB
     Dosage: LAST INFUSION: 03/OCT/2018
     Route: 042

REACTIONS (9)
  - Urinary tract infection [Not Recovered/Not Resolved]
  - Back pain [Not Recovered/Not Resolved]
  - Oral pain [Not Recovered/Not Resolved]
  - Glossodynia [Not Recovered/Not Resolved]
  - Pain [Unknown]
  - Asthenia [Not Recovered/Not Resolved]
  - Therapeutic response decreased [Unknown]
  - Joint stiffness [Unknown]
  - Gait disturbance [Unknown]

NARRATIVE: CASE EVENT DATE: 201710
